FAERS Safety Report 17337882 (Version 1)
Quarter: 2020Q1

REPORT INFORMATION
  Report Type: Spontaneous
  Country: NL (occurrence: NL)
  Receive Date: 20200129
  Receipt Date: 20200129
  Transmission Date: 20200409
  Serious: Yes (Hospitalization)
  Sender: FDA-Public Use
  Company Number: NL-ROCHE-2527027

PATIENT
  Age: 44 Year
  Sex: Female

DRUGS (1)
  1. OCREVUS [Suspect]
     Active Substance: OCRELIZUMAB
     Indication: RELAPSING-REMITTING MULTIPLE SCLEROSIS
     Route: 065
     Dates: start: 201901

REACTIONS (3)
  - Ectopic thyroid [Unknown]
  - Thyroid gland abscess [Unknown]
  - Thyroid haemorrhage [Unknown]

NARRATIVE: CASE EVENT DATE: 201911
